FAERS Safety Report 20930819 (Version 1)
Quarter: 2022Q2

REPORT INFORMATION
  Report Type: Spontaneous
  Country: IN (occurrence: IN)
  Receive Date: 20220608
  Receipt Date: 20220608
  Transmission Date: 20220721
  Serious: Yes (Other)
  Sender: FDA-Public Use
  Company Number: IN-BIOVITRUM-2022IN07406

PATIENT
  Age: 4 Year
  Sex: Male

DRUGS (1)
  1. NITISINONE [Suspect]
     Active Substance: NITISINONE
     Indication: Tyrosinaemia

REACTIONS (3)
  - Hepatocellular carcinoma [Unknown]
  - Alpha 1 foetoprotein increased [Unknown]
  - Drug ineffective [Unknown]
